FAERS Safety Report 20035690 (Version 2)
Quarter: 2021Q4

REPORT INFORMATION
  Report Type: Spontaneous
  Country: US (occurrence: US)
  Receive Date: 20211104
  Receipt Date: 20211119
  Transmission Date: 20220303
  Serious: No
  Sender: FDA-Public Use
  Company Number: US-009507513-2110USA007962

PATIENT
  Age: 20 Year
  Sex: Female

DRUGS (4)
  1. CUBICIN [Suspect]
     Active Substance: DAPTOMYCIN
     Indication: Fusobacterium infection
     Dosage: UNK
     Route: 042
     Dates: start: 2019
  2. CUBICIN [Suspect]
     Active Substance: DAPTOMYCIN
     Indication: Propionibacterium infection
  3. CEFTRIAXONE [Concomitant]
     Active Substance: CEFTRIAXONE
  4. METRONIDAZOLE [Concomitant]
     Active Substance: METRONIDAZOLE

REACTIONS (1)
  - Product use in unapproved indication [Unknown]

NARRATIVE: CASE EVENT DATE: 20190101
